FAERS Safety Report 20975431 (Version 1)
Quarter: 2022Q2

REPORT INFORMATION
  Report Type: Report from Study
  Country: FR (occurrence: FR)
  Receive Date: 20220617
  Receipt Date: 20220617
  Transmission Date: 20220721
  Serious: Yes (Other)
  Sender: FDA-Public Use
  Company Number: FR-SUN PHARMACEUTICAL INDUSTRIES LTD-2022RR-341156

PATIENT
  Age: 22 Year
  Sex: Male

DRUGS (11)
  1. RISPERIDONE [Suspect]
     Active Substance: RISPERIDONE
     Indication: Antipsychotic therapy
     Dosage: {1 NG/ML
     Route: 065
  2. DIAZEPAM [Suspect]
     Active Substance: DIAZEPAM
     Indication: Antipsychotic therapy
     Dosage: 413 NG/ML
     Route: 065
  3. OLANZAPINE [Suspect]
     Active Substance: OLANZAPINE
     Indication: Antipsychotic therapy
     Dosage: { 1 NG/ML
     Route: 065
  4. LOXAPINE [Suspect]
     Active Substance: LOXAPINE
     Indication: Antipsychotic therapy
     Dosage: 45 NG/ML
     Route: 065
  5. 8-hydroxyloxapine [Concomitant]
     Indication: Antipsychotic therapy
     Dosage: 38 NG/ML
     Route: 065
  6. TRIMEPRAZINE [Concomitant]
     Active Substance: TRIMEPRAZINE
     Indication: Antipsychotic therapy
     Dosage: UNK
     Route: 065
  7. NORDAZEPAM [Concomitant]
     Active Substance: NORDAZEPAM
     Indication: Antipsychotic therapy
     Dosage: 267 NG/ML
     Route: 065
  8. OXAZEPAM [Concomitant]
     Active Substance: OXAZEPAM
     Indication: Antipsychotic therapy
     Dosage: 70.3 NG/ML
     Route: 065
  9. TEMAZEPAM [Concomitant]
     Active Substance: TEMAZEPAM
     Indication: Antipsychotic therapy
     Dosage: 21.2 NG/ML
     Route: 065
  10. 9-hydroxyrisperidone [Concomitant]
     Indication: Antipsychotic therapy
     Dosage: { 5 NG/ML
     Route: 065
  11. desmethylolanzapine [Concomitant]
     Indication: Antipsychotic therapy
     Dosage: { 5 NG/ML
     Route: 065

REACTIONS (1)
  - Electrocardiogram QT prolonged [Unknown]
